FAERS Safety Report 14116619 (Version 1)
Quarter: 2017Q4

REPORT INFORMATION
  Report Type: Spontaneous
  Country: US (occurrence: US)
  Receive Date: 20171023
  Receipt Date: 20171023
  Transmission Date: 20180321
  Serious: No
  Sender: FDA-Public Use
  Company Number: US-DEPOMED, INC.-US-2017DEP001674

PATIENT

DRUGS (11)
  1. NUCYNTA ER [Suspect]
     Active Substance: TAPENTADOL HYDROCHLORIDE
     Indication: SPINAL DISORDER
  2. PANCREATIC ENZYMES [Concomitant]
     Active Substance: UNSPECIFIED INGREDIENT
     Indication: PANCREATIC DISORDER
     Dosage: UNK, LIPASE AND ANALYSE BEFORE MEALS
     Route: 048
     Dates: start: 2009
  3. GABAPENTIN. [Concomitant]
     Active Substance: GABAPENTIN
     Indication: NEURALGIA
     Dosage: 400 MG, TID
     Route: 048
     Dates: start: 201511
  4. NUCYNTA ER [Suspect]
     Active Substance: TAPENTADOL HYDROCHLORIDE
     Indication: PAIN
  5. JINTELI [Concomitant]
     Active Substance: ETHINYL ESTRADIOL\NORETHINDRONE ACETATE
     Indication: HORMONE THERAPY
     Dosage: UNK, QD
     Route: 048
     Dates: start: 2010
  6. IBUPROFEN. [Concomitant]
     Active Substance: IBUPROFEN
     Indication: PAIN
     Dosage: 800 MG, 3-4 TIMES A DAY
     Route: 048
     Dates: start: 201510
  7. TIZANIDINE. [Concomitant]
     Active Substance: TIZANIDINE
     Indication: MUSCLE RELAXANT THERAPY
     Dosage: 4 MG, QID
     Route: 048
     Dates: start: 201510
  8. NUCYNTA ER [Suspect]
     Active Substance: TAPENTADOL HYDROCHLORIDE
     Indication: SPINAL OPERATION
     Dosage: 50 MG, BID
     Route: 048
     Dates: start: 201707, end: 201707
  9. DULOXETINE. [Concomitant]
     Active Substance: DULOXETINE
     Indication: NEURALGIA
     Dosage: 30 MG, BID
     Route: 048
     Dates: start: 201604
  10. FAMOTIDINE. [Concomitant]
     Active Substance: FAMOTIDINE
     Indication: GASTRIC DISORDER
     Dosage: 20 MG, TID
     Route: 045
     Dates: start: 201604
  11. PROBIOTIC                          /06395501/ [Concomitant]
     Active Substance: BIFIDOBACTERIUM ANIMALIS LACTIS
     Indication: ILL-DEFINED DISORDER
     Dosage: ^1000 BILLION A DAY^
     Route: 048

REACTIONS (4)
  - Fall [Recovered/Resolved]
  - Drug screen positive [Unknown]
  - Dizziness [Recovered/Resolved]
  - Loss of employment [Not Recovered/Not Resolved]

NARRATIVE: CASE EVENT DATE: 2017
